FAERS Safety Report 23190374 (Version 3)
Quarter: 2023Q4

REPORT INFORMATION
  Report Type: Report from Study
  Country: US (occurrence: US)
  Receive Date: 20231116
  Receipt Date: 20231129
  Transmission Date: 20240109
  Serious: Yes (Hospitalization)
  Sender: FDA-Public Use
  Company Number: US-INSMED, INC.-2023-03052-US

PATIENT
  Sex: Female

DRUGS (3)
  1. ARIKAYCE [Suspect]
     Active Substance: AMIKACIN
     Indication: Mycobacterium avium complex infection
     Dosage: 590 MILLIGRAM, QD
     Route: 055
     Dates: start: 20230725, end: 2023
  2. NUZYRA [Suspect]
     Active Substance: OMADACYCLINE
     Indication: Product used for unknown indication
     Dosage: UNK
     Route: 065
  3. IMIPENEM AND CILASTATIN [Concomitant]
     Active Substance: CILASTATIN SODIUM\IMIPENEM
     Indication: Product used for unknown indication
     Dosage: UNK, TID
     Route: 042

REACTIONS (17)
  - Hospitalisation [Unknown]
  - Bradykinesia [Unknown]
  - Secretion discharge [Not Recovered/Not Resolved]
  - Stomatitis [Unknown]
  - Rehabilitation therapy [Unknown]
  - Weight increased [Unknown]
  - Sputum increased [Not Recovered/Not Resolved]
  - Dry mouth [Not Recovered/Not Resolved]
  - Cough [Not Recovered/Not Resolved]
  - Adverse drug reaction [Not Recovered/Not Resolved]
  - Dysphonia [Recovering/Resolving]
  - Oral pain [Not Recovered/Not Resolved]
  - Asthenia [Unknown]
  - Nausea [Not Recovered/Not Resolved]
  - Fatigue [Not Recovered/Not Resolved]
  - Illness [Unknown]
  - Therapy interrupted [Unknown]

NARRATIVE: CASE EVENT DATE: 20230101
